FAERS Safety Report 7183427-7 (Version None)
Quarter: 2010Q4

REPORT INFORMATION
  Report Type: 
  Country: None (occurrence: None)
  Receive Date: 20101222
  Receipt Date: 20101203
  Transmission Date: 20110411
  Serious: No
  Sender: FDA-Public Use
  Company Number: US-B.I. PHARMACEUTICALS,INC./RIDGEFIELD-2010-BP-13941BP

PATIENT
  Age: 75 Year
  Sex: Male

DRUGS (5)
  1. PRADAXA [Suspect]
     Indication: ATRIAL FIBRILLATION
     Dosage: 300 MG
     Route: 048
     Dates: start: 20101117
  2. METHIMAZOLE [Concomitant]
     Indication: HYPOTHYROIDISM
     Dosage: 2.5 MG
     Route: 048
     Dates: start: 20100101
  3. DOXYCYCLINE [Concomitant]
     Indication: RASH
     Dosage: 100 MG
     Route: 048
     Dates: start: 20100101
  4. MULTAQ [Concomitant]
     Indication: CARDIAC DISORDER
     Dosage: 800 MG
     Route: 048
     Dates: start: 20100701
  5. VITAMIN B-12 [Concomitant]

REACTIONS (1)
  - INTERNATIONAL NORMALISED RATIO DECREASED [None]
